FAERS Safety Report 17007859 (Version 1)
Quarter: 2019Q4

REPORT INFORMATION
  Report Type: Spontaneous
  Country: CA (occurrence: CA)
  Receive Date: 20191108
  Receipt Date: 20191108
  Transmission Date: 20200122
  Serious: Yes (Hospitalization, Other)
  Sender: FDA-Public Use
  Company Number: CA-TEVA-2019-CA-1132718

PATIENT
  Age: 80 Year
  Sex: Male
  Weight: 82 kg

DRUGS (8)
  1. NAPROXEN SODIUM CAPSULES [Suspect]
     Active Substance: NAPROXEN SODIUM
     Indication: ARTHRALGIA
  2. NAPROXEN SODIUM CAPSULES [Suspect]
     Active Substance: NAPROXEN SODIUM
     Indication: PAIN
     Route: 065
  3. SLEEP AID/00000402/ [Concomitant]
     Indication: PRODUCT USED FOR UNKNOWN INDICATION
     Route: 065
  4. NAPROXEN SODIUM. [Suspect]
     Active Substance: NAPROXEN SODIUM
     Indication: PAIN
     Dosage: 5 DOSAGE FORMS DAILY;
     Route: 048
  5. NAPROXEN SODIUM TABLETS [Suspect]
     Active Substance: NAPROXEN SODIUM
     Indication: PAIN
     Route: 065
  6. NAPROXEN SODIUM TABLETS [Suspect]
     Active Substance: NAPROXEN SODIUM
     Indication: ARTHRALGIA
  7. NAPROXEN SODIUM. [Suspect]
     Active Substance: NAPROXEN SODIUM
     Indication: ARTHRALGIA
  8. ACETAMINOPHEN. [Concomitant]
     Active Substance: ACETAMINOPHEN
     Indication: PRODUCT USED FOR UNKNOWN INDICATION
     Route: 065

REACTIONS (11)
  - Constipation [Recovered/Resolved]
  - Gastrointestinal pain [Recovered/Resolved]
  - Incorrect dosage administered [Recovered/Resolved]
  - Incorrect product administration duration [Recovered/Resolved]
  - Infrequent bowel movements [Recovered/Resolved]
  - Therapeutic product effect incomplete [Recovered/Resolved]
  - Abdominal distension [Recovered/Resolved]
  - Hospitalisation [Recovered/Resolved]
  - Intestinal obstruction [Recovered/Resolved]
  - Vomiting [Recovered/Resolved]
  - Expired product administered [Recovered/Resolved]
